FAERS Safety Report 13113099 (Version 2)
Quarter: 2017Q1

REPORT INFORMATION
  Report Type: Report from Study
  Country: CA (occurrence: CA)
  Receive Date: 20170113
  Receipt Date: 20170116
  Transmission Date: 20170428
  Serious: Yes (Other)
  Sender: FDA-Public Use
  Company Number: CA-BEH-2016058258

PATIENT
  Age: 70 Year
  Sex: Female

DRUGS (2)
  1. BLINDED PLACEBO [Suspect]
     Active Substance: INVESTIGATIONAL PRODUCT
     Indication: AORTIC VALVE REPLACEMENT
     Route: 065
     Dates: start: 20160114
  2. RIASTAP [Suspect]
     Active Substance: FIBRINOGEN HUMAN
     Indication: AORTIC VALVE REPLACEMENT
     Route: 065
     Dates: start: 20160114

REACTIONS (1)
  - Cerebrovascular accident [Unknown]

NARRATIVE: CASE EVENT DATE: 20160115
